FAERS Safety Report 15639093 (Version 1)
Quarter: 2018Q4

REPORT INFORMATION
  Report Type: Spontaneous
  Country: US (occurrence: US)
  Receive Date: 20181120
  Receipt Date: 20181120
  Transmission Date: 20190205
  Serious: No
  Sender: FDA-Public Use
  Company Number: US-PERRIGO-18US010827

PATIENT
  Sex: Female

DRUGS (1)
  1. POLYETHYLENE GLYCOL 3350. [Suspect]
     Active Substance: POLYETHYLENE GLYCOL 3350
     Indication: CONSTIPATION
     Dosage: 17 G, TID
     Route: 048
     Dates: start: 201808

REACTIONS (5)
  - Diarrhoea [Unknown]
  - Frequent bowel movements [Unknown]
  - Overdose [Unknown]
  - Incorrect product administration duration [Unknown]
  - Inappropriate schedule of product administration [Unknown]

NARRATIVE: CASE EVENT DATE: 201808
